FAERS Safety Report 20092151 (Version 1)
Quarter: 2021Q4

REPORT INFORMATION
  Report Type: Report from Study
  Country: DE (occurrence: DE)
  Receive Date: 20211119
  Receipt Date: 20211119
  Transmission Date: 20220303
  Serious: Yes (Life-Threatening, Other)
  Sender: FDA-Public Use
  Company Number: DE-002147023-PHHY2019DE003245

PATIENT
  Sex: Female
  Weight: 83 kg

DRUGS (6)
  1. LETROZOLE [Suspect]
     Active Substance: LETROZOLE
     Indication: Breast cancer metastatic
     Dosage: 2.5 MILLIGRAM, QD (2.5 MG, QD)
     Route: 048
     Dates: start: 20181204
  2. KISQALI [Suspect]
     Active Substance: RIBOCICLIB
     Indication: Breast cancer metastatic
     Dosage: 600 MILLIGRAM (600 MG, (D1-21) (Q4W))
     Route: 048
     Dates: start: 20181204, end: 20181226
  3. KISQALI [Suspect]
     Active Substance: RIBOCICLIB
     Dosage: 400 MILLIGRAM (400 MG, (D1-21) (Q4W))
     Route: 048
     Dates: start: 20190107, end: 20190305
  4. KISQALI [Suspect]
     Active Substance: RIBOCICLIB
     Dosage: 400 MILLIGRAM (400 MG, ADMINISTRATION SCHEME 21 DAYS INTAKE, 7 DAYS PAUSE)
     Route: 048
     Dates: start: 20190308, end: 20190331
  5. KISQALI [Suspect]
     Active Substance: RIBOCICLIB
     Dosage: 200 MILLIGRAM (200 MG, (ADMINISTRATION SCHEME 21 DAYS INTAKE, 7 DAYS PAUSE))
     Route: 048
     Dates: start: 20190405
  6. ZOMETA [Concomitant]
     Active Substance: ZOLEDRONIC ACID
     Indication: Product used for unknown indication
     Dosage: UNK
     Route: 065

REACTIONS (7)
  - Neutropenia [Recovered/Resolved]
  - Blood creatinine increased [Not Recovered/Not Resolved]
  - Fatigue [Recovering/Resolving]
  - Dyspnoea exertional [Not Recovered/Not Resolved]
  - Bone pain [Recovered/Resolved]
  - Nausea [Recovered/Resolved]
  - Feeling cold [Recovered/Resolved]

NARRATIVE: CASE EVENT DATE: 20181204
